FAERS Safety Report 6257520-7 (Version None)
Quarter: 2009Q3

REPORT INFORMATION
  Report Type: 
  Country: None (occurrence: None)
  Receive Date: 20090706
  Receipt Date: 20090625
  Transmission Date: 20100115
  Serious: Yes (Hospitalization)
  Sender: FDA-Public Use
  Company Number: JP-BRISTOL-MYERS SQUIBB COMPANY-14602890

PATIENT
  Age: 61 Year
  Sex: Male

DRUGS (9)
  1. ERBITUX [Suspect]
     Indication: COLON CANCER
     Dosage: FROM 20APR09,360MG GIVEN.
     Route: 042
     Dates: start: 20090413, end: 20090413
  2. IRINOTECAN HCL [Concomitant]
     Indication: COLON CANCER
     Route: 042
     Dates: start: 20090413
  3. FLUOROURACIL [Concomitant]
     Indication: COLON CANCER
     Dosage: CONTINUOUS IV DRIP INF OF 5FU-3500MG/BODY DAILY.
     Route: 040
     Dates: start: 20090413
  4. LEUCOVORIN CALCIUM [Concomitant]
     Indication: COLON CANCER
     Route: 042
     Dates: start: 20090413
  5. POLARAMINE [Concomitant]
     Indication: PREMEDICATION
     Route: 042
     Dates: start: 20090413
  6. DECADRON [Concomitant]
     Indication: PREMEDICATION
     Route: 042
     Dates: start: 20090413
  7. KYTRIL [Concomitant]
     Indication: ANTIEMETIC SUPPORTIVE CARE
     Route: 042
     Dates: start: 20090413, end: 20090415
  8. HEPARIN CALCIUM [Concomitant]
     Indication: CORONARY ARTERIAL STENT INSERTION
     Dosage: 1 DF = 15000UNITS.NOVO HEPARIN.
     Route: 042
     Dates: start: 20090219, end: 20090416
  9. NEOPAREN [Concomitant]
     Indication: PARENTERAL NUTRITION
     Dosage: FROM 15APR09-17APR09(2DAYS) FROM 18APR09-07MAY09(19DAYS)
     Route: 042
     Dates: start: 20090415, end: 20090507

REACTIONS (1)
  - ATRIAL FIBRILLATION [None]
